FAERS Safety Report 4406408-2 (Version None)
Quarter: 2004Q3

REPORT INFORMATION
  Report Type: 
  Country: None (occurrence: None)
  Receive Date: 20040723
  Receipt Date: 20030721
  Transmission Date: 20050211
  Serious: No
  Sender: FDA-Public Use
  Company Number: US-GLAXOSMITHKLINE-A0417635A

PATIENT
  Age: 69 Year
  Sex: Female

DRUGS (5)
  1. AVANDIA [Suspect]
     Route: 048
     Dates: start: 20030719
  2. HUMALOG [Concomitant]
  3. LANTUS [Concomitant]
  4. OSCAL [Concomitant]
  5. ACE INHIBITOR [Concomitant]

REACTIONS (1)
  - BLOOD GLUCOSE DECREASED [None]
